FAERS Safety Report 10094319 (Version 1)
Quarter: 2014Q2

REPORT INFORMATION
  Report Type: Spontaneous
  Country: US (occurrence: None)
  Receive Date: 20140421
  Receipt Date: 20140421
  Transmission Date: 20141212
  Serious: Yes (Other)
  Sender: FDA-Public Use
  Company Number: None

PATIENT
  Age: 44 Year
  Sex: Female
  Weight: 76.66 kg

DRUGS (1)
  1. FIORICET [Suspect]
     Indication: MIGRAINE
     Route: 048

REACTIONS (3)
  - Drug effect decreased [None]
  - Suicidal ideation [None]
  - Dehydration [None]
